FAERS Safety Report 9282586 (Version 1)
Quarter: 2013Q2

REPORT INFORMATION
  Report Type: Spontaneous
  Country: FR (occurrence: FR)
  Receive Date: 20130510
  Receipt Date: 20130510
  Transmission Date: 20140414
  Serious: Yes (Hospitalization)
  Sender: FDA-Public Use
  Company Number: PHHY2013FR043517

PATIENT
  Age: 30 Year
  Sex: Female

DRUGS (9)
  1. GLIVEC [Suspect]
     Indication: ACUTE LYMPHOCYTIC LEUKAEMIA
     Dosage: 800 MG, QD
     Route: 048
     Dates: start: 20130313, end: 20130327
  2. VINCRISTINE SULPHATE [Suspect]
     Indication: ACUTE LYMPHOCYTIC LEUKAEMIA
     Dosage: 2 MG, QD ON D4 AND D11
     Route: 042
     Dates: start: 20130316, end: 20130323
  3. DOXORUBICIN TEVA [Suspect]
     Indication: ACUTE LYMPHOCYTIC LEUKAEMIA
     Dosage: 86.5 MG, QD  ON D4
     Route: 042
     Dates: start: 20130316, end: 20130316
  4. ARACYTINE [Suspect]
     Indication: ACUTE LYMPHOCYTIC LEUKAEMIA
     Dosage: 40 MG, D1, D8, D15
     Route: 037
     Dates: start: 20130313, end: 20130328
  5. METHOTREXATE TEVA//METHOTREXATE [Suspect]
     Indication: ACUTE LYMPHOCYTIC LEUKAEMIA
     Dosage: 15 MG, ON D1, D8 AND D15
     Route: 037
     Dates: start: 20130313, end: 20130328
  6. METHYLPREDNISOLONE [Suspect]
     Indication: ACUTE LYMPHOCYTIC LEUKAEMIA
     Dosage: 40 MG, ON D1, D8 AND D15
     Route: 037
     Dates: start: 20130313, end: 20130328
  7. ENDOXAN [Suspect]
     Indication: ACUTE LYMPHOCYTIC LEUKAEMIA
     Dosage: 1308 MG, QD ON D1 AND D3
     Route: 042
     Dates: start: 20130313, end: 20130315
  8. DEXAMETHASONE [Suspect]
     Indication: ACUTE LYMPHOCYTIC LEUKAEMIA
     Dosage: 40 MG, QD FROM D1 TO D4 AND D11 TO D14
     Route: 042
     Dates: start: 20130313, end: 20130327
  9. CHEMOTHERAPEUTICS [Concomitant]
     Dosage: UNK UKN, UNK
     Dates: start: 20130313

REACTIONS (2)
  - Posterior reversible encephalopathy syndrome [Recovered/Resolved]
  - Convulsion [Recovered/Resolved]
